FAERS Safety Report 11676042 (Version 1)
Quarter: 2015Q4

REPORT INFORMATION
  Report Type: Other
  Country: CH (occurrence: CH)
  Receive Date: 20151028
  Receipt Date: 20151028
  Transmission Date: 20160304
  Serious: Yes (Other)
  Sender: FDA-Public Use
  Company Number: CH-NSR_02258_2015

PATIENT
  Age: 61 Year

DRUGS (2)
  1. BACLOFEN. [Suspect]
     Active Substance: BACLOFEN
     Indication: ALCOHOL ABUSE
     Dosage: 100 MG/D
  2. BACLOFEN. [Suspect]
     Active Substance: BACLOFEN
     Dosage: UP TO 350 MG/D

REACTIONS (3)
  - Off label use [Unknown]
  - Sleep apnoea syndrome [Unknown]
  - Road traffic accident [Recovered/Resolved]
